FAERS Safety Report 5214656-7 (Version None)
Quarter: 2007Q1

REPORT INFORMATION
  Report Type: 
  Country: None (occurrence: None)
  Receive Date: 20070122
  Receipt Date: 20070108
  Transmission Date: 20070707
  Serious: Yes (Other)
  Sender: FDA-Public Use
  Company Number: US-ELI_LILLY_AND_COMPANY-US200612003391

PATIENT
  Age: 51 Year
  Sex: Female

DRUGS (2)
  1. EVISTA [Suspect]
     Indication: FAMILIAL RISK FACTOR
     Dosage: 60 MG, DAILY (1/D)
     Route: 048
     Dates: start: 20020101, end: 20061217
  2. ATENOLOL [Concomitant]
     Dosage: UNK, UNKNOWN
     Route: 065

REACTIONS (6)
  - APHONIA [None]
  - EYE HAEMORRHAGE [None]
  - FATIGUE [None]
  - FRUSTRATION [None]
  - SPEECH DISORDER [None]
  - STRESS AT WORK [None]
